FAERS Safety Report 8515753-0 (Version None)
Quarter: 2012Q3

REPORT INFORMATION
  Report Type: 
  Country: None (occurrence: None)
  Receive Date: 20120717
  Receipt Date: 20120716
  Transmission Date: 20120928
  Serious: Yes (Other)
  Sender: FDA-Public Use
  Company Number: PHHY2012DE060580

PATIENT
  Age: 71 Year
  Sex: Female

DRUGS (1)
  1. ZOMETA [Suspect]
     Dosage: 4 MG, EVERY 4 WEEKS
     Route: 042

REACTIONS (2)
  - STRESS FRACTURE [None]
  - PAIN IN EXTREMITY [None]
